FAERS Safety Report 16425446 (Version 2)
Quarter: 2019Q2

REPORT INFORMATION
  Report Type: Spontaneous
  Country: US (occurrence: US)
  Receive Date: 20190613
  Receipt Date: 20190628
  Transmission Date: 20190711
  Serious: Yes (Other)
  Sender: FDA-Public Use
  Company Number: US-JNJFOC-20190613883

PATIENT
  Age: 49 Year
  Sex: Female
  Weight: 88.98 kg

DRUGS (5)
  1. AVEENO POSITIVELY RADIANT OVERNIGHT HYDRATING FACIAL MOISTURIZER USA (COSMETICS) [Suspect]
     Active Substance: COSMETICS
     Indication: PRODUCT USED FOR UNKNOWN INDICATION
     Dosage: DIME SIZED AMOUNT, ONCE
     Route: 061
     Dates: start: 20190608, end: 20190608
  2. ZYRTEC [Concomitant]
     Active Substance: CETIRIZINE HYDROCHLORIDE
     Indication: SINUS DISORDER
     Dosage: AS NEEDED FOR SINUS ISSUES
     Route: 065
  3. VITAMIN B12 [Concomitant]
     Active Substance: CYANOCOBALAMIN
     Indication: PRODUCT USED FOR UNKNOWN INDICATION
     Dosage: ONE DAILY
     Route: 065
  4. AVEENO CLEAR COMPLEXION DAILY CLEANSING [Suspect]
     Active Substance: SALICYLIC ACID
     Indication: PRODUCT USED FOR UNKNOWN INDICATION
     Dosage: ONE CLEANSING PAD, ONCE
     Route: 061
     Dates: start: 20190608, end: 20190608
  5. AVEENO NOS [Suspect]
     Active Substance: DIMETHICONE OR HOMOSALATE\OCTINOXATE\OCTISALATE\TITANIUM DIOXIDE
     Indication: PRODUCT USED FOR UNKNOWN INDICATION
     Route: 061

REACTIONS (6)
  - Application site warmth [Recovered/Resolved]
  - Erythema [Recovered/Resolved]
  - Nausea [Recovered/Resolved]
  - Application site swelling [Recovered/Resolved]
  - Application site pain [Recovered/Resolved]
  - Application site pruritus [Recovered/Resolved]

NARRATIVE: CASE EVENT DATE: 20190608
